FAERS Safety Report 5477650-7 (Version None)
Quarter: 2007Q4

REPORT INFORMATION
  Report Type: 
  Country: None (occurrence: None)
  Receive Date: 20071002
  Receipt Date: 20070917
  Transmission Date: 20080405
  Serious: Yes (Disabling)
  Sender: FDA-Public Use
  Company Number: 161696ISR

PATIENT
  Age: 60 Year
  Sex: Male

DRUGS (3)
  1. SIMVASTATIN [Suspect]
     Indication: BLOOD CHOLESTEROL INCREASED
     Dosage: (40 MG)
     Route: 048
     Dates: start: 20070724
  2. EZETIMIBE [Suspect]
     Indication: BLOOD CHOLESTEROL INCREASED
     Dosage: (10 MG)
     Route: 048
     Dates: start: 20070724
  3. ROSUVASTATIN [Suspect]
     Indication: BLOOD CHOLESTEROL INCREASED
     Dosage: (10 MG)
     Route: 048
     Dates: start: 20070724

REACTIONS (1)
  - DYSPNOEA EXERTIONAL [None]
